FAERS Safety Report 9669030 (Version 1)
Quarter: 2013Q4

REPORT INFORMATION
  Report Type: Spontaneous
  Country: US (occurrence: US)
  Receive Date: 20131105
  Receipt Date: 20131105
  Transmission Date: 20140711
  Serious: No
  Sender: FDA-Public Use
  Company Number: US-PFIZER INC-2013311406

PATIENT
  Sex: Female

DRUGS (4)
  1. DIAZEPAM [Suspect]
     Dosage: 5 MG, AS NEEDED (1 TAB Q 6HR PRN)
  2. LYRICA [Suspect]
     Dosage: 100 MG, 3X/DAY
  3. WELLBUTRIN [Suspect]
     Dosage: UNK
  4. TIZANIDINE [Suspect]
     Dosage: 4 MG 1-2 TABS Q 6HR PRN

REACTIONS (1)
  - Drug hypersensitivity [Unknown]
